FAERS Safety Report 22339635 (Version 1)
Quarter: 2023Q2

REPORT INFORMATION
  Report Type: Report from Study
  Country: IN (occurrence: IN)
  Receive Date: 20230518
  Receipt Date: 20230518
  Transmission Date: 20230721
  Serious: Yes (Other)
  Sender: FDA-Public Use
  Company Number: IN-MYLANLABS-2023M1051718

PATIENT
  Age: 33 Year
  Sex: Male

DRUGS (13)
  1. ETOPOSIDE [Suspect]
     Active Substance: ETOPOSIDE
     Indication: B precursor type acute leukaemia
     Dosage: UNK, AS A PART OF CLOVE REGIMEN
     Route: 065
  2. CYTARABINE [Suspect]
     Active Substance: CYTARABINE
     Indication: B precursor type acute leukaemia
     Dosage: UNK, AS A PART OF BFM-90 PROTOCOL
     Route: 065
  3. DASATINIB [Suspect]
     Active Substance: DASATINIB
     Indication: B precursor type acute leukaemia
     Dosage: UNK
     Route: 065
  4. METHOTREXATE [Suspect]
     Active Substance: METHOTREXATE
     Indication: B precursor type acute leukaemia
     Dosage: UNK, AS A PART OF BFM-90 PROTOCOL
     Route: 065
  5. DOXORUBICIN [Suspect]
     Active Substance: DOXORUBICIN
     Indication: B precursor type acute leukaemia
     Dosage: UNK, AS A PART OF BFM-90 PROTOCOL
     Route: 065
  6. PREDNISONE [Suspect]
     Active Substance: PREDNISONE
     Indication: B precursor type acute leukaemia
     Dosage: UNK, AS A PART OF BFM-90 PROTOCOL
     Route: 065
  7. VINCRISTINE [Suspect]
     Active Substance: VINCRISTINE
     Indication: B precursor type acute leukaemia
     Dosage: UNK, AS A PART OF BFM-90 PROTOCOL
     Route: 065
  8. ASPARAGINASE [Suspect]
     Active Substance: ASPARAGINASE
     Indication: B precursor type acute leukaemia
     Dosage: UNK, AS A PART OF BFM-90 PROTOCOL
     Route: 065
  9. CYCLOPHOSPHAMIDE [Suspect]
     Active Substance: CYCLOPHOSPHAMIDE
     Indication: B precursor type acute leukaemia
     Dosage: UNK, AS A PART OF BFM-90 PROTOCOL
     Route: 065
  10. CYCLOPHOSPHAMIDE [Suspect]
     Active Substance: CYCLOPHOSPHAMIDE
     Dosage: UNK, AS A PART OF CLOVE REGIMEN
     Route: 065
  11. DAUNORUBICIN [Suspect]
     Active Substance: DAUNORUBICIN
     Indication: B precursor type acute leukaemia
     Dosage: UNK, AS A PART OF BFM-90 PROTOCOL
     Route: 065
  12. MERCAPTOPURINE [Suspect]
     Active Substance: MERCAPTOPURINE
     Indication: B precursor type acute leukaemia
     Dosage: UNK, AS A PART OF BFM-90 PROTOCOL
     Route: 065
  13. CLOFARABINE [Suspect]
     Active Substance: CLOFARABINE
     Indication: B precursor type acute leukaemia
     Dosage: UNK, AS A PART OF CLOVE REGIMEN
     Route: 065

REACTIONS (1)
  - Treatment failure [Unknown]
